FAERS Safety Report 9764212 (Version 6)
Quarter: 2015Q1

REPORT INFORMATION
  Report Type: Spontaneous
  Country: US (occurrence: US)
  Receive Date: 20131216
  Receipt Date: 20150324
  Transmission Date: 20150721
  Serious: Yes (Hospitalization, Other)
  Sender: FDA-Public Use
  Company Number: US-009507513-1312USA005231

PATIENT
  Sex: Female

DRUGS (6)
  1. ALENDRONATE SODIUM. [Suspect]
     Active Substance: ALENDRONATE SODIUM
     Dosage: 70 MG, UNK
     Route: 048
     Dates: start: 20090226, end: 20100913
  2. CALCIUM (UNSPECIFIED) [Concomitant]
     Active Substance: CALCIUM
     Dosage: UNK
     Dates: start: 1994, end: 2012
  3. FOSAMAX [Suspect]
     Active Substance: ALENDRONATE SODIUM
     Indication: OSTEOPOROSIS
     Dosage: 5 MG, UNK
     Route: 048
     Dates: start: 20001027, end: 20010226
  4. FOSAMAX [Suspect]
     Active Substance: ALENDRONATE SODIUM
     Dosage: 70 MG, UNK
     Route: 048
     Dates: start: 20010727, end: 2011
  5. VITAMIN D [Concomitant]
     Active Substance: CHOLECALCIFEROL
     Dosage: UNK
     Dates: start: 1994
  6. FOSAMAX [Suspect]
     Active Substance: ALENDRONATE SODIUM
     Dosage: 10 MG, QD
     Route: 048
     Dates: start: 20010314, end: 20010712

REACTIONS (18)
  - Fall [Unknown]
  - Ovarian cyst [Unknown]
  - Skin cancer [Unknown]
  - Major depression [Unknown]
  - Rheumatoid arthritis [Unknown]
  - Femur fracture [Recovering/Resolving]
  - Osteoarthritis [Unknown]
  - Bladder neck suspension [Unknown]
  - Intervertebral disc protrusion [Unknown]
  - Anxiety [Unknown]
  - Migraine [Unknown]
  - Fall [Unknown]
  - Intramedullary rod insertion [Unknown]
  - Surgery [Unknown]
  - Head injury [Unknown]
  - Irritable bowel syndrome [Unknown]
  - Lumbar spinal stenosis [Unknown]
  - Fracture [Unknown]

NARRATIVE: CASE EVENT DATE: 2000
